FAERS Safety Report 23302322 (Version 2)
Quarter: 2024Q1

REPORT INFORMATION
  Report Type: Spontaneous
  Country: FR (occurrence: FR)
  Receive Date: 20231215
  Receipt Date: 20240105
  Transmission Date: 20240409
  Serious: Yes (Hospitalization)
  Sender: FDA-Public Use
  Company Number: None

PATIENT
  Age: 17 Year
  Sex: Male
  Weight: 71.6 kg

DRUGS (5)
  1. CLINDAMYCIN [Suspect]
     Active Substance: CLINDAMYCIN
     Indication: Groin abscess
     Dosage: 600 MILLIGRAM, TID (600 MG X 3/DAY)
     Route: 048
     Dates: start: 20231120, end: 20231122
  2. AMOXICILLIN\CLAVULANIC ACID [Suspect]
     Active Substance: AMOXICILLIN\CLAVULANIC ACID
     Indication: Groin abscess
     Dosage: 1 DOSAGE FORM, TID (1 DF X 3/DAY)
     Route: 042
     Dates: start: 20231118, end: 20231120
  3. MORPHINE SULFATE [Concomitant]
     Active Substance: MORPHINE SULFATE
     Indication: Groin pain
     Dosage: UNK
     Route: 048
     Dates: start: 20231116, end: 20231121
  4. DOLIPRANE [Concomitant]
     Active Substance: ACETAMINOPHEN
     Indication: Groin pain
     Dosage: 1 GRAM, QD
     Route: 048
     Dates: start: 20231122, end: 20231123
  5. DOLIPRANE [Concomitant]
     Active Substance: ACETAMINOPHEN
     Dosage: 3 GRAM, QD (IN 3 DOSES)
     Route: 048
     Dates: start: 20231114, end: 20231121

REACTIONS (1)
  - Hepatocellular injury [Recovered/Resolved]

NARRATIVE: CASE EVENT DATE: 20231122
